FAERS Safety Report 14108757 (Version 5)
Quarter: 2018Q2

REPORT INFORMATION
  Report Type: Report from Study
  Country: US (occurrence: US)
  Receive Date: 20171019
  Receipt Date: 20180518
  Transmission Date: 20180711
  Serious: Yes (Hospitalization)
  Sender: FDA-Public Use
  Company Number: US-ACTELION-A-US2017-153865

PATIENT
  Age: 52 Year
  Sex: Female

DRUGS (25)
  1. OPSUMIT [Suspect]
     Active Substance: MACITENTAN
     Indication: PULMONARY ARTERIAL HYPERTENSION
     Dosage: 10 MG, QD
     Route: 048
     Dates: start: 201704
  2. ELIQUIS [Concomitant]
     Active Substance: APIXABAN
  3. REMODULIN [Concomitant]
     Active Substance: TREPROSTINIL
  4. DIGOXIN. [Concomitant]
     Active Substance: DIGOXIN
     Dosage: 250 MCG, QD
     Dates: start: 2016
  5. ALDACTONE [Concomitant]
     Active Substance: SPIRONOLACTONE
     Dosage: 25 MG, QD
  6. SPIRONOLACTONE. [Concomitant]
     Active Substance: SPIRONOLACTONE
  7. FLUTICASONE. [Concomitant]
     Active Substance: FLUTICASONE
  8. AMOXICILLIN. [Concomitant]
     Active Substance: AMOXICILLIN
  9. XARELTO [Concomitant]
     Active Substance: RIVAROXABAN
     Dosage: 20 MG, QD
  10. SILDENAFIL. [Concomitant]
     Active Substance: SILDENAFIL
     Dosage: 20 MG, QD
     Dates: start: 2017
  11. GABAPENTIN. [Concomitant]
     Active Substance: GABAPENTIN
  12. FAMOTIDINE. [Concomitant]
     Active Substance: FAMOTIDINE
  13. ENOXAPARIN [Concomitant]
     Active Substance: ENOXAPARIN
  14. LORATADINE. [Concomitant]
     Active Substance: LORATADINE
  15. CLOPIDOGREL [Concomitant]
     Active Substance: CLOPIDOGREL BISULFATE
  16. LIDOCAINE. [Concomitant]
     Active Substance: LIDOCAINE
  17. CIPROFLOXACIN. [Concomitant]
     Active Substance: CIPROFLOXACIN
  18. BENZONATATE. [Concomitant]
     Active Substance: BENZONATATE
  19. LATANOPROST. [Concomitant]
     Active Substance: LATANOPROST
  20. CIALIS [Concomitant]
     Active Substance: TADALAFIL
  21. ASPIRIN. [Concomitant]
     Active Substance: ASPIRIN
  22. FLUCONAZOLE. [Concomitant]
     Active Substance: FLUCONAZOLE
  23. PHENAZOPYRIDINE. [Concomitant]
     Active Substance: PHENAZOPYRIDINE
  24. VENTOLIN HFA [Concomitant]
     Active Substance: ALBUTEROL SULFATE
  25. CETIRIZINE [Concomitant]
     Active Substance: CETIRIZINE HYDROCHLORIDE

REACTIONS (12)
  - Dizziness [Not Recovered/Not Resolved]
  - Dyspepsia [Not Recovered/Not Resolved]
  - Hypoaesthesia [Not Recovered/Not Resolved]
  - Nasal congestion [Not Recovered/Not Resolved]
  - Nausea [Not Recovered/Not Resolved]
  - Abdominal discomfort [Not Recovered/Not Resolved]
  - Vomiting [Not Recovered/Not Resolved]
  - Somnolence [Not Recovered/Not Resolved]
  - Headache [Not Recovered/Not Resolved]
  - Hypotension [Not Recovered/Not Resolved]
  - Syncope [Not Recovered/Not Resolved]
  - Drug dose omission [Unknown]

NARRATIVE: CASE EVENT DATE: 201704
